FAERS Safety Report 9996095 (Version 1)
Quarter: 2014Q1

REPORT INFORMATION
  Report Type: Spontaneous
  Country: US (occurrence: None)
  Receive Date: 20140221
  Receipt Date: 20140221
  Transmission Date: 20141002
  Serious: Yes (Other)
  Sender: FDA-Public Use
  Company Number: 1000050731

PATIENT
  Age: 65 Year
  Sex: Female

DRUGS (1)
  1. TUDORZA PRESSAIR [Suspect]
     Route: 055

REACTIONS (1)
  - Rash [None]
